FAERS Safety Report 19384472 (Version 2)
Quarter: 2021Q2

REPORT INFORMATION
  Report Type: Report from Study
  Country: NG (occurrence: NG)
  Receive Date: 20210607
  Receipt Date: 20210621
  Transmission Date: 20210717
  Serious: Yes (Other)
  Sender: FDA-Public Use
  Company Number: NVSC2020NG300887

PATIENT
  Age: 30 Year
  Sex: Male

DRUGS (2)
  1. UPERIO [Suspect]
     Active Substance: SACUBITRIL\VALSARTAN
     Indication: CARDIAC FAILURE CONGESTIVE
  2. UPERIO [Suspect]
     Active Substance: SACUBITRIL\VALSARTAN
     Indication: NON-COMPACTION CARDIOMYOPATHY
     Dosage: 50 MG, BID
     Route: 048
     Dates: start: 202007

REACTIONS (13)
  - Pyrexia [Recovering/Resolving]
  - Fatigue [Unknown]
  - Cough [Recovering/Resolving]
  - Catarrh [Unknown]
  - Product dose omission issue [Unknown]
  - Malaria [Unknown]
  - Speech disorder [Recovering/Resolving]
  - Typhoid fever [Unknown]
  - Dysphagia [Recovering/Resolving]
  - Oropharyngeal discomfort [Recovered/Resolved]
  - Dyspnoea [Unknown]
  - Musculoskeletal chest pain [Unknown]
  - Memory impairment [Unknown]

NARRATIVE: CASE EVENT DATE: 20201102
